FAERS Safety Report 14294057 (Version 1)
Quarter: 2017Q4

REPORT INFORMATION
  Report Type: Spontaneous
  Country: IT (occurrence: IT)
  Receive Date: 20171217
  Receipt Date: 20171217
  Transmission Date: 20180321
  Serious: Yes (Other)
  Sender: FDA-Public Use
  Company Number: IT-CIPLA LTD.-2017IT25669

PATIENT

DRUGS (4)
  1. ZOLEDRONIC ACID [Suspect]
     Active Substance: ZOLEDRONIC ACID
     Indication: METASTASES TO BONE
     Dosage: 4 MG, UNK (ONE CYCLICAL)
     Route: 042
  2. CALANTHA [Concomitant]
     Dosage: 2.5 MG, UNK
     Route: 048
  3. OMEPRAZOLE. [Concomitant]
     Active Substance: OMEPRAZOLE
     Dosage: 20 MG, UNK
     Route: 065
  4. CONGESCOR [Concomitant]
     Active Substance: BISOPROLOL
     Dosage: 1.25 MG, UNK
     Route: 065

REACTIONS (1)
  - Swelling [Recovering/Resolving]

NARRATIVE: CASE EVENT DATE: 20170712
